FAERS Safety Report 16902681 (Version 2)
Quarter: 2020Q1

REPORT INFORMATION
  Report Type: Report from Study
  Country: FR (occurrence: IT)
  Receive Date: 20191010
  Receipt Date: 20200120
  Transmission Date: 20200409
  Serious: Yes (Other)
  Sender: FDA-Public Use
  Company Number: FR-ROCHE-2430848

PATIENT
  Age: 8 Year
  Sex: Male

DRUGS (1)
  1. VEMURAFENIB. [Suspect]
     Active Substance: VEMURAFENIB
     Indication: LANGERHANS^ CELL HISTIOCYTOSIS
     Route: 048

REACTIONS (4)
  - Intentional product use issue [Unknown]
  - Clonus [Unknown]
  - Dry skin [Unknown]
  - Off label use [Unknown]
